FAERS Safety Report 5329238-6 (Version None)
Quarter: 2007Q2

REPORT INFORMATION
  Report Type: 
  Country: None (occurrence: None)
  Receive Date: 20070518
  Receipt Date: 20070508
  Transmission Date: 20071010
  Serious: Yes (Other)
  Sender: FDA-Public Use
  Company Number: JP-PFIZER INC-2007037417

PATIENT

DRUGS (1)
  1. UNASYN [Suspect]

REACTIONS (1)
  - BLOOD POTASSIUM DECREASED [None]
